FAERS Safety Report 11004952 (Version 1)
Quarter: 2015Q2

REPORT INFORMATION
  Report Type: Spontaneous
  Country: DE (occurrence: DE)
  Receive Date: 20150409
  Receipt Date: 20150409
  Transmission Date: 20150821
  Serious: Yes (Other)
  Sender: FDA-Public Use
  Company Number: DE-CELGENE-DEU-2015036307

PATIENT

DRUGS (2)
  1. POMALIDOMIDE [Suspect]
     Active Substance: POMALIDOMIDE
     Route: 048
  2. POMALIDOMIDE [Suspect]
     Active Substance: POMALIDOMIDE
     Indication: PLASMA CELL MYELOMA
     Route: 048

REACTIONS (7)
  - Infection [Unknown]
  - Pneumonia [Unknown]
  - Neutropenia [Unknown]
  - Asthenia [Unknown]
  - Graft versus host disease [Unknown]
  - Thrombocytopenia [Unknown]
  - Gastroenteritis [Unknown]
